FAERS Safety Report 10232391 (Version 1)
Quarter: 2014Q2

REPORT INFORMATION
  Report Type: Report from Study
  Country: US (occurrence: US)
  Receive Date: 20140612
  Receipt Date: 20140612
  Transmission Date: 20141212
  Serious: Yes (Other)
  Sender: FDA-Public Use
  Company Number: US-ROCHE-1414917

PATIENT
  Sex: 0

DRUGS (3)
  1. RIBAVIRIN [Suspect]
     Indication: HEPATITIS C
     Dosage: 1000 MG DAILY IN PATIENTS WITH A BODY WEIGHT {75 KG, AND 1200 MG DAILY IN PATIENTS WITH A BODY WEIGH
     Route: 048
  2. LEDIPASVIR [Suspect]
     Indication: HEPATITIS C
     Route: 048
  3. SOFOSBUVIR [Suspect]
     Indication: HEPATITIS C
     Route: 048

REACTIONS (6)
  - Cellulitis [Unknown]
  - Chest pain [Unknown]
  - Gastroenteritis [Unknown]
  - Hand fracture [Unknown]
  - Non-cardiac chest pain [Unknown]
  - Pneumonia [Unknown]
